FAERS Safety Report 18194334 (Version 1)
Quarter: 2020Q3

REPORT INFORMATION
  Report Type: Spontaneous
  Country: US (occurrence: US)
  Receive Date: 20200825
  Receipt Date: 20200825
  Transmission Date: 20201103
  Serious: Yes (Hospitalization, Other)
  Sender: FDA-Public Use
  Company Number: US-PFIZER INC-2020328864

PATIENT
  Age: 77 Year
  Sex: Female

DRUGS (20)
  1. AMLODIPINE BESILATE [Suspect]
     Active Substance: AMLODIPINE BESYLATE
     Dosage: UNK
     Route: 065
  2. IMBRUVICA [Suspect]
     Active Substance: IBRUTINIB
     Indication: LYMPHADENOPATHY
     Dosage: 280 MILLIGRAM, QD
     Route: 048
     Dates: start: 20191015
  3. MULTIVITAMIN [ASCORBIC ACID;BIOTIN;CALCIUM PANTOTHENATE;CYANOCOBALAMIN [Concomitant]
     Active Substance: VITAMINS
     Dosage: UNK
     Route: 065
  4. HYDROCHLOROTHIAZIDE. [Suspect]
     Active Substance: HYDROCHLOROTHIAZIDE
     Dosage: UNK
     Route: 065
  5. PREDNISONE. [Concomitant]
     Active Substance: PREDNISONE
     Dosage: UNK
     Route: 065
  6. ALLOPURINOL. [Concomitant]
     Active Substance: ALLOPURINOL
     Dosage: UNK
     Route: 065
  7. IMBRUVICA [Suspect]
     Active Substance: IBRUTINIB
     Indication: B-CELL LYMPHOMA
     Dosage: 420 MILLIGRAM, QD
     Route: 048
     Dates: start: 20190725, end: 20191014
  8. IMBRUVICA [Suspect]
     Active Substance: IBRUTINIB
     Dosage: 280 MILLIGRAM, QD
     Route: 048
     Dates: start: 20191205
  9. COENZYME Q10 [Concomitant]
     Active Substance: DIETARY SUPPLEMENT\UBIDECARENONE
     Dosage: UNK
     Route: 065
  10. FUROSEMIDE. [Concomitant]
     Active Substance: FUROSEMIDE
     Dosage: UNK
     Route: 065
  11. ELIQUIS [Suspect]
     Active Substance: APIXABAN
     Dosage: UNK
     Route: 065
  12. ULTRAM [Suspect]
     Active Substance: TRAMADOL HYDROCHLORIDE
     Dosage: UNK
     Route: 065
  13. ERYTHROMYCIN. [Concomitant]
     Active Substance: ERYTHROMYCIN
     Dosage: UNK
     Route: 065
  14. ANTIVERT [MECLOZINE HYDROCHLORIDE;NICOTINIC ACID] [Concomitant]
     Active Substance: MECLIZINE MONOHYDROCHLORIDE\NIACIN
     Dosage: UNK
     Route: 065
  15. COZAAR [Concomitant]
     Active Substance: LOSARTAN POTASSIUM
     Dosage: UNK
     Route: 065
  16. IMBRUVICA [Suspect]
     Active Substance: IBRUTINIB
     Dosage: 280 MILLIGRAM
     Route: 065
     Dates: start: 201912
  17. BENADRYL [Concomitant]
     Active Substance: DIPHENHYDRAMINE HYDROCHLORIDE
     Dosage: UNK
     Route: 065
  18. CARVEDILOL. [Concomitant]
     Active Substance: CARVEDILOL
     Dosage: UNK
     Route: 065
  19. POTASSIUM [Concomitant]
     Active Substance: POTASSIUM
     Dosage: UNK
     Route: 065
  20. VACCINIUM MACROCARPON [Concomitant]
     Active Substance: CRANBERRY
     Dosage: UNK
     Route: 065

REACTIONS (30)
  - Trichorrhexis [Unknown]
  - Dry skin [Unknown]
  - Bone swelling [Unknown]
  - Blood pressure increased [Unknown]
  - Emotional disorder [Unknown]
  - Weight increased [Unknown]
  - Adverse drug reaction [Unknown]
  - Diarrhoea [Recovering/Resolving]
  - Skin discolouration [Unknown]
  - Atrial fibrillation [Unknown]
  - Injection site inflammation [Unknown]
  - Panic attack [Unknown]
  - Sciatica [Unknown]
  - Erythema [Unknown]
  - Injection site bruising [Unknown]
  - Arthralgia [Unknown]
  - Peripheral swelling [Unknown]
  - Increased tendency to bruise [Unknown]
  - Nasopharyngitis [Unknown]
  - Dyspnoea [Unknown]
  - Vessel puncture site bruise [Unknown]
  - Pain [Unknown]
  - Flushing [Unknown]
  - Discomfort [Unknown]
  - Hypotension [Unknown]
  - Tooth fracture [Unknown]
  - Asthenia [Recovering/Resolving]
  - Hypertension [Unknown]
  - Pain in extremity [Not Recovered/Not Resolved]
  - Contusion [Unknown]

NARRATIVE: CASE EVENT DATE: 20190917
